FAERS Safety Report 7805237-7 (Version None)
Quarter: 2011Q4

REPORT INFORMATION
  Report Type: 
  Country: None (occurrence: None)
  Receive Date: 20111010
  Receipt Date: 20110927
  Transmission Date: 20120403
  Serious: Yes (Other)
  Sender: FDA-Public Use
  Company Number: US-ELI_LILLY_AND_COMPANY-US201110000027

PATIENT
  Sex: Female

DRUGS (7)
  1. HYZAAR [Concomitant]
  2. SIMVASTATIN [Concomitant]
  3. NEXIUM [Concomitant]
  4. CYMBALTA [Suspect]
     Indication: DEPRESSION
     Dosage: 60 MG, UNK
  5. MACROBID [Concomitant]
  6. METFORMIN HYDROCHLORIDE [Concomitant]
  7. XANAX [Concomitant]

REACTIONS (4)
  - HEPATIC STEATOSIS [None]
  - SUICIDAL IDEATION [None]
  - ANXIETY [None]
  - HEPATIC ENZYME INCREASED [None]
